FAERS Safety Report 23523485 (Version 1)
Quarter: 2024Q1

REPORT INFORMATION
  Report Type: Report from Study
  Country: US (occurrence: US)
  Receive Date: 20240214
  Receipt Date: 20240214
  Transmission Date: 20240410
  Serious: No
  Sender: FDA-Public Use
  Company Number: US-E2BLSMVVAL-CLI/USA/24/0002076

PATIENT
  Age: 39 Year
  Sex: Female
  Weight: 84.59 kg

DRUGS (3)
  1. JAVYGTOR [Suspect]
     Active Substance: SAPROPTERIN DIHYDROCHLORIDE
     Indication: Hyperphenylalaninaemia
     Dosage: 1500 MG ORAL DAILY IN MORNING??POWDER FOR ORAL SOLUTION 500 MG
     Route: 048
  2. Prenatal Complete [Concomitant]
     Dosage: COMPLETE 14 MG- 400 TABLET.
  3. VITAMIN D [Concomitant]
     Active Substance: VITAMIN D NOS
     Dosage: 400 10 MCG TABLET

REACTIONS (3)
  - Exposure during pregnancy [Unknown]
  - Product dose omission issue [Unknown]
  - Anxiety [Unknown]
